FAERS Safety Report 23160823 (Version 4)
Quarter: 2024Q3

REPORT INFORMATION
  Report Type: Spontaneous
  Country: US (occurrence: US)
  Receive Date: 20231108
  Receipt Date: 20240813
  Transmission Date: 20241017
  Serious: Yes (Other)
  Sender: SANOFI AVENTIS
  Company Number: US-SA-2023SA335137

PATIENT
  Age: 68 Year
  Sex: Male

DRUGS (1)
  1. DUPIXENT [Suspect]
     Active Substance: DUPILUMAB
     Indication: Nasal polyps
     Dosage: 300 MG, QOW
     Route: 058

REACTIONS (11)
  - Diverticulitis [Unknown]
  - Feeling abnormal [Unknown]
  - Abdominal distension [Unknown]
  - Flatulence [Unknown]
  - Abdominal pain lower [Unknown]
  - Nasal congestion [Unknown]
  - Parosmia [Unknown]
  - Arthropod bite [Unknown]
  - Exfoliative rash [Unknown]
  - Rash erythematous [Unknown]
  - Therapeutic product effect decreased [Unknown]

NARRATIVE: CASE EVENT DATE: 20240101
